FAERS Safety Report 17169104 (Version 1)
Quarter: 2019Q4

REPORT INFORMATION
  Report Type: Spontaneous
  Country: US (occurrence: US)
  Receive Date: 20191217
  Receipt Date: 20191217
  Transmission Date: 20200122
  Serious: Yes (Disabling, Other)
  Sender: FDA-Public Use
  Company Number: None

PATIENT
  Age: 36 Year
  Sex: Male
  Weight: 90.9 kg

DRUGS (1)
  1. CBD OIL HEMP-DERIVED CANNABIDIOL FULL SPECTRUM HEMP SUPPL [Suspect]
     Active Substance: CANNABIDIOL\CANNABIS SATIVA SEED OIL
     Indication: ANXIETY
     Dosage: ?          QUANTITY:3 DROPPER;?
     Route: 048
     Dates: start: 20191207, end: 20191217

REACTIONS (8)
  - Speech disorder [None]
  - Hypokinesia [None]
  - Urine cannabinoids increased [None]
  - Thinking abnormal [None]
  - Hallucination, visual [None]
  - Euphoric mood [None]
  - Dizziness [None]
  - Product formulation issue [None]

NARRATIVE: CASE EVENT DATE: 20191217
